FAERS Safety Report 5441626-6 (Version None)
Quarter: 2007Q3

REPORT INFORMATION
  Report Type: 
  Country: None (occurrence: None)
  Receive Date: 20070829
  Receipt Date: 20070814
  Transmission Date: 20080115
  Serious: Yes (Hospitalization)
  Sender: FDA-Public Use
  Company Number: 2007RR-09445

PATIENT
  Age: 39 Year
  Sex: Female

DRUGS (2)
  1. IBUPROFEN [Suspect]
     Indication: PAIN
     Dosage: 400 MG, TID, ORAL
     Route: 048
     Dates: start: 20070709, end: 20070716
  2. AMOXICILLIN [Concomitant]

REACTIONS (1)
  - DUODENAL ULCER [None]
